FAERS Safety Report 12365640 (Version 1)
Quarter: 2016Q2

REPORT INFORMATION
  Report Type: Spontaneous
  Country: GB (occurrence: GB)
  Receive Date: 20160513
  Receipt Date: 20160513
  Transmission Date: 20160815
  Serious: Yes (Other)
  Sender: FDA-Public Use
  Company Number: GB-GLAXOSMITHKLINE-B0361407A

PATIENT
  Sex: Female

DRUGS (12)
  1. AMITRIPTYLINE HYDROCHLORIDE. [Concomitant]
     Active Substance: AMITRIPTYLINE HYDROCHLORIDE
     Dates: start: 20060214
  2. CIPRAMIL [Concomitant]
     Active Substance: CITALOPRAM HYDROBROMIDE
     Dates: start: 20050623
  3. DIAZEPAM. [Concomitant]
     Active Substance: DIAZEPAM
     Dates: start: 19960213
  4. EFFEXOR [Concomitant]
     Active Substance: VENLAFAXINE HYDROCHLORIDE
     Dates: start: 20030617
  5. HRT [Concomitant]
     Active Substance: UNSPECIFIED INGREDIENT
     Dosage: UNK
     Route: 065
  6. SEROXAT [Suspect]
     Active Substance: PAROXETINE HYDROCHLORIDE
     Indication: DEPRESSION
  7. SEROXAT [Suspect]
     Active Substance: PAROXETINE HYDROCHLORIDE
     Indication: PANIC ATTACK
     Route: 065
     Dates: start: 19940915
  8. CHLORPROMAZINE. [Concomitant]
     Active Substance: CHLORPROMAZINE
     Indication: ANXIETY
  9. PROTHIADEN [Concomitant]
     Active Substance: DOTHIEPIN HYDROCHLORIDE
     Dates: start: 19980612
  10. HYDROXYCOBALAMIN [Concomitant]
     Indication: PERNICIOUS ANAEMIA
     Dates: start: 1996
  11. METFORMIN [Concomitant]
     Active Substance: METFORMIN HYDROCHLORIDE
     Indication: TYPE 2 DIABETES MELLITUS
     Dates: start: 2004
  12. THIORIDAZINE [Concomitant]
     Active Substance: THIORIDAZINE
     Indication: ANXIETY

REACTIONS (19)
  - Malaise [Unknown]
  - Vomiting [Unknown]
  - Drug dependence [Unknown]
  - Pruritus generalised [Unknown]
  - Agitation [Unknown]
  - Flushing [Unknown]
  - Paraesthesia [Unknown]
  - Disturbance in attention [Unknown]
  - Hyperhidrosis [Unknown]
  - Flat affect [Unknown]
  - Dizziness [Unknown]
  - Visual impairment [Unknown]
  - Drug withdrawal syndrome [Unknown]
  - Rash [Unknown]
  - Aggression [Unknown]
  - Libido decreased [Unknown]
  - Tinnitus [Unknown]
  - Fatigue [Unknown]
  - Anger [Unknown]

NARRATIVE: CASE EVENT DATE: 2003
